FAERS Safety Report 8310951-3 (Version None)
Quarter: 2012Q2

REPORT INFORMATION
  Report Type: 
  Country: None (occurrence: None)
  Receive Date: 20120425
  Receipt Date: 20120417
  Transmission Date: 20120825
  Serious: No
  Sender: FDA-Public Use
  Company Number: US-BIOGENIDEC-2012BI013393

PATIENT
  Sex: Female

DRUGS (2)
  1. TYSABRI [Suspect]
     Indication: MULTIPLE SCLEROSIS
     Route: 042
     Dates: start: 20110805
  2. AMANTADINE HCL [Concomitant]

REACTIONS (4)
  - HEADACHE [None]
  - DIZZINESS [None]
  - BONE PAIN [None]
  - MULTIPLE ALLERGIES [None]
